FAERS Safety Report 11942133 (Version 10)
Quarter: 2021Q1

REPORT INFORMATION
  Report Type: Other
  Country: CA (occurrence: CA)
  Receive Date: 20160125
  Receipt Date: 20210114
  Transmission Date: 20210419
  Serious: Yes (Hospitalization, Other)
  Sender: FDA-Public Use
  Company Number: CA-ROCHE-1535340

PATIENT
  Age: 36 Year
  Sex: Male
  Weight: 134.7 kg

DRUGS (10)
  1. REACTINE (CANADA) [Concomitant]
     Active Substance: CETIRIZINE HYDROCHLORIDE
  2. RITUXAN [Suspect]
     Active Substance: RITUXIMAB
     Indication: PEMPHIGUS
     Route: 042
     Dates: start: 20150402
  3. IMURAN [Suspect]
     Active Substance: AZATHIOPRINE
     Indication: PRODUCT USED FOR UNKNOWN INDICATION
     Route: 065
  4. CALCIUM [Concomitant]
     Active Substance: CALCIUM
  5. ACTONEL [Concomitant]
     Active Substance: RISEDRONATE SODIUM
  6. CELLCEPT [Suspect]
     Active Substance: MYCOPHENOLATE MOFETIL\MYCOPHENOLATE MOFETIL HYDROCHLORIDE
     Indication: PRODUCT USED FOR UNKNOWN INDICATION
     Route: 065
     Dates: end: 201501
  7. RITUXAN [Suspect]
     Active Substance: RITUXIMAB
     Route: 042
     Dates: start: 20200429
  8. PREDNISONE. [Suspect]
     Active Substance: PREDNISONE
     Indication: PRODUCT USED FOR UNKNOWN INDICATION
     Route: 065
  9. LOSEC [Concomitant]
     Active Substance: OMEPRAZOLE
  10. CYMBALTA [Suspect]
     Active Substance: DULOXETINE HYDROCHLORIDE
     Indication: PRODUCT USED FOR UNKNOWN INDICATION
     Route: 065

REACTIONS (24)
  - Eye disorder [Recovering/Resolving]
  - Weight increased [Unknown]
  - Muscle spasms [Unknown]
  - Off label use [Unknown]
  - Weight decreased [Unknown]
  - Throat irritation [Recovered/Resolved]
  - Dizziness [Not Recovered/Not Resolved]
  - Blood urine present [Not Recovered/Not Resolved]
  - Anal fissure [Unknown]
  - Anxiety [Recovering/Resolving]
  - Headache [Recovering/Resolving]
  - Infusion related reaction [Recovered/Resolved]
  - Proctalgia [Unknown]
  - Tremor [Recovering/Resolving]
  - Hypoaesthesia [Unknown]
  - Near death experience [Recovering/Resolving]
  - Anal abscess [Recovering/Resolving]
  - Hypersensitivity [Unknown]
  - Pemphigus [Unknown]
  - Tinnitus [Not Recovered/Not Resolved]
  - Intentional product use issue [Unknown]
  - Drug ineffective [Unknown]
  - Throat irritation [Recovering/Resolving]
  - Oral disorder [Not Recovered/Not Resolved]

NARRATIVE: CASE EVENT DATE: 20150402
